FAERS Safety Report 5086908-5 (Version None)
Quarter: 2006Q3

REPORT INFORMATION
  Report Type: 
  Country: None (occurrence: None)
  Receive Date: 20060818
  Receipt Date: 20060808
  Transmission Date: 20061208
  Serious: Yes (Other)
  Sender: FDA-Public Use
  Company Number: 2006097872

PATIENT
  Age: 74 Year
  Sex: Male

DRUGS (2)
  1. DILANTIN [Suspect]
     Indication: CONVULSION
  2. ARICEPT [Suspect]
     Indication: AMNESIA
     Dosage: 5 MG (5 MG, 1 IN 1 D)

REACTIONS (3)
  - AMNESIA [None]
  - CONSTIPATION [None]
  - DIARRHOEA [None]
